FAERS Safety Report 22278733 (Version 1)
Quarter: 2023Q2

REPORT INFORMATION
  Report Type: Spontaneous
  Country: TR (occurrence: TR)
  Receive Date: 20230503
  Receipt Date: 20230503
  Transmission Date: 20230722
  Serious: Yes (Life-Threatening, Disabling, Other)
  Sender: FDA-Public Use
  Company Number: TR-PFIZER INC-202300168782

PATIENT
  Age: 55 Year
  Sex: Male

DRUGS (1)
  1. LORLATINIB [Suspect]
     Active Substance: LORLATINIB
     Indication: Lung adenocarcinoma
     Dosage: 100 MG, DAILY

REACTIONS (5)
  - Hallucination, visual [Recovering/Resolving]
  - Blindness [Not Recovered/Not Resolved]
  - Optic neuropathy [Unknown]
  - Optic atrophy [Unknown]
  - Ocular toxicity [Unknown]
